FAERS Safety Report 6269507-9 (Version None)
Quarter: 2009Q3

REPORT INFORMATION
  Report Type: 
  Country: None (occurrence: None)
  Receive Date: 20090715
  Receipt Date: 20081205
  Transmission Date: 20100115
  Serious: No
  Sender: FDA-Public Use
  Company Number: US-TYCO HEALTHCARE/MALLINCKRODT-T200802132

PATIENT

DRUGS (1)
  1. OXYCODONE HCL [Suspect]
     Dosage: UNK
     Dates: start: 20080108

REACTIONS (2)
  - DRUG EFFECT INCREASED [None]
  - SOMNOLENCE [None]
